FAERS Safety Report 8816174 (Version 2)
Quarter: 2012Q4

REPORT INFORMATION
  Report Type: 
  Country: US (occurrence: US)
  Receive Date: 20120929
  Receipt Date: 20121002
  Transmission Date: 20130627
  Serious: No
  Sender: FDA-Public Use
  Company Number: US-009507513-1209USA009205

PATIENT
  Sex: Female

DRUGS (2)
  1. NEXPLANON [Suspect]
     Dosage: 1 DF, UNK
     Dates: start: 20120920, end: 20120920
  2. NEXPLANON [Suspect]
     Dosage: 1 DF, UNK
     Dates: start: 20120920

REACTIONS (2)
  - Medical device complication [Unknown]
  - No adverse event [Unknown]
